FAERS Safety Report 8121984-4 (Version None)
Quarter: 2012Q1

REPORT INFORMATION
  Report Type: 
  Country: None (occurrence: None)
  Receive Date: 20120208
  Receipt Date: 20120131
  Transmission Date: 20120608
  Serious: No
  Sender: FDA-Public Use
  Company Number: US-B.I. PHARMACEUTICALS,INC./RIDGEFIELD-2011-BP-27860BP

PATIENT
  Sex: Female

DRUGS (3)
  1. PANTOPRAZOLE [Concomitant]
     Dates: start: 20111101
  2. ZANTAC 150 [Suspect]
     Indication: GASTROOESOPHAGEAL REFLUX DISEASE
     Dosage: 150 MG
     Route: 048
     Dates: start: 20111101, end: 20111201
  3. SYNTHROID [Concomitant]
     Indication: THYROID DISORDER
     Dosage: 100 MG
     Route: 048
     Dates: start: 20100101

REACTIONS (3)
  - ABDOMINAL DISCOMFORT [None]
  - EATING DISORDER [None]
  - NAUSEA [None]
